FAERS Safety Report 12677930 (Version 3)
Quarter: 2016Q3

REPORT INFORMATION
  Report Type: Report from Study
  Country: JP (occurrence: JP)
  Receive Date: 20160823
  Receipt Date: 20160920
  Transmission Date: 20161109
  Serious: Yes (Hospitalization, Other)
  Sender: FDA-Public Use
  Company Number: JP-BRISTOL-MYERS SQUIBB COMPANY-BMS-2016-063464

PATIENT
  Age: 41 Year
  Sex: Female

DRUGS (9)
  1. NIVOLUMAB [Suspect]
     Active Substance: NIVOLUMAB
     Indication: NON-SMALL CELL LUNG CANCER RECURRENT
     Dosage: 3 MG/KG, Q2WK
     Route: 041
     Dates: start: 20160120, end: 20160120
  2. NIVOLUMAB [Suspect]
     Active Substance: NIVOLUMAB
     Dosage: 3 MG/KG, Q2WK
     Route: 041
     Dates: start: 2016
  3. TAGRISSO [Suspect]
     Active Substance: OSIMERTINIB
     Indication: NON-SMALL CELL LUNG CANCER RECURRENT
     Dosage: 80 MG, UNK
     Route: 065
     Dates: start: 20160404
  4. NIVOLUMAB [Suspect]
     Active Substance: NIVOLUMAB
     Dosage: 3 MG/KG, Q2WK
     Route: 041
     Dates: start: 2016
  5. NIVOLUMAB [Suspect]
     Active Substance: NIVOLUMAB
     Dosage: 3 MG/KG, Q2WK
     Route: 041
     Dates: start: 2016
  6. TAGRISSO [Suspect]
     Active Substance: OSIMERTINIB
     Dosage: 80 MG, UNK
     Route: 065
     Dates: start: 20160516
  7. NIVOLUMAB [Suspect]
     Active Substance: NIVOLUMAB
     Dosage: 3 MG/KG, Q2WK
     Route: 041
     Dates: start: 20160202, end: 20160202
  8. TAGRISSO [Suspect]
     Active Substance: OSIMERTINIB
     Dosage: 40 MG, UNK
     Route: 065
     Dates: start: 20160418
  9. NIVOLUMAB [Suspect]
     Active Substance: NIVOLUMAB
     Dosage: 3 MG/KG, Q2WK
     Route: 041
     Dates: start: 20160328, end: 20160328

REACTIONS (2)
  - Interstitial lung disease [Recovering/Resolving]
  - Cardiac tamponade [Recovered/Resolved]

NARRATIVE: CASE EVENT DATE: 20160416
